FAERS Safety Report 15590878 (Version 2)
Quarter: 2018Q4

REPORT INFORMATION
  Report Type: Spontaneous
  Country: FR (occurrence: FR)
  Receive Date: 20181107
  Receipt Date: 20181109
  Transmission Date: 20190205
  Serious: Yes (Other)
  Sender: FDA-Public Use
  Company Number: FR-LEO PHARMA-314777

PATIENT
  Sex: Female

DRUGS (1)
  1. DAIVOBET [Suspect]
     Active Substance: BETAMETHASONE DIPROPIONATE\CALCIPOTRIENE
     Indication: ROSACEA
     Dosage: 1 APPLICATION DAILY
     Route: 061

REACTIONS (3)
  - Psychological trauma [Not Recovered/Not Resolved]
  - Rosacea [Not Recovered/Not Resolved]
  - Contraindicated product prescribed [Unknown]
